FAERS Safety Report 4678263-7 (Version None)
Quarter: 2005Q2

REPORT INFORMATION
  Report Type: 
  Country: None (occurrence: None)
  Receive Date: 20050527
  Receipt Date: 20050519
  Transmission Date: 20051028
  Serious: Yes (Other)
  Sender: FDA-Public Use
  Company Number: CA-2005-008685

PATIENT
  Age: 26 Year
  Sex: Female

DRUGS (2)
  1. MIRENA [Suspect]
     Dosage: 20 ?G/DAY, CONT, ITNRA-UTERINE
     Route: 015
     Dates: start: 20050401
  2. ADVIL [Concomitant]

REACTIONS (1)
  - HYPERTENSIVE CRISIS [None]
